FAERS Safety Report 11754093 (Version 1)
Quarter: 2015Q4

REPORT INFORMATION
  Report Type: Spontaneous
  Country: US (occurrence: US)
  Receive Date: 20151119
  Receipt Date: 20151119
  Transmission Date: 20160304
  Serious: Yes (Other)
  Sender: FDA-Public Use
  Company Number: US-JNJFOC-20151114256

PATIENT
  Sex: Female
  Weight: 111.13 kg

DRUGS (1)
  1. DURAGESIC [Suspect]
     Active Substance: FENTANYL
     Indication: PAIN
     Route: 062

REACTIONS (5)
  - Underdose [Recovered/Resolved]
  - Disability [Not Recovered/Not Resolved]
  - Adverse event [Unknown]
  - Product adhesion issue [Unknown]
  - Product quality issue [Unknown]
